FAERS Safety Report 9190826 (Version 1)
Quarter: 2013Q1

REPORT INFORMATION
  Report Type: Spontaneous
  Country: US (occurrence: US)
  Receive Date: 20130326
  Receipt Date: 20130326
  Transmission Date: 20140127
  Serious: Yes (Hospitalization)
  Sender: FDA-Public Use
  Company Number: US-GLAXOSMITHKLINE-A1014996A

PATIENT
  Sex: Female

DRUGS (3)
  1. FLOLAN [Suspect]
     Indication: PRODUCT USED FOR UNKNOWN INDICATION
     Dosage: 19NGKM CONTINUOUS
     Route: 065
     Dates: start: 20030227
  2. REVATIO [Concomitant]
  3. TRACLEER [Concomitant]

REACTIONS (5)
  - Headache [Unknown]
  - Nausea [Unknown]
  - Malaise [Unknown]
  - Extrasystoles [Unknown]
  - Heart rate irregular [Unknown]
